FAERS Safety Report 6739785-8 (Version None)
Quarter: 2010Q2

REPORT INFORMATION
  Report Type: 
  Country: None (occurrence: None)
  Receive Date: 20100525
  Receipt Date: 20100511
  Transmission Date: 20101027
  Serious: Yes (Other)
  Sender: FDA-Public Use
  Company Number: PHHY2010BR30914

PATIENT
  Age: 77 Year
  Sex: Male

DRUGS (2)
  1. DICLOFENAC [Suspect]
     Dosage: 1 TABLET  A DAY
     Route: 048
  2. TYLENOL [Concomitant]
     Indication: PYREXIA
     Dosage: 1 DF, Q8H
     Route: 048
     Dates: start: 20100511

REACTIONS (3)
  - BACK PAIN [None]
  - DENGUE FEVER [None]
  - HEADACHE [None]
